FAERS Safety Report 16721754 (Version 1)
Quarter: 2019Q3

REPORT INFORMATION
  Report Type: Spontaneous
  Country: US (occurrence: US)
  Receive Date: 20190820
  Receipt Date: 20190820
  Transmission Date: 20191005
  Serious: Yes (Other)
  Sender: FDA-Public Use
  Company Number: US-ASTRAZENECA-2019SF16958

PATIENT
  Age: 3178 Week
  Sex: Female
  Weight: 72.6 kg

DRUGS (1)
  1. BYDUREON BCISE [Suspect]
     Active Substance: EXENATIDE
     Indication: TYPE 2 DIABETES MELLITUS
     Route: 058
     Dates: start: 2019

REACTIONS (16)
  - Pain in jaw [Unknown]
  - Chest pain [Unknown]
  - Hypoaesthesia [Unknown]
  - Myocardial infarction [Unknown]
  - Wrong technique in device usage process [Unknown]
  - Pulse abnormal [Unknown]
  - Amnesia [Unknown]
  - Pain in extremity [Not Recovered/Not Resolved]
  - Underdose [Unknown]
  - Axillary pain [Unknown]
  - Hypopnoea [Unknown]
  - Neuropathy peripheral [Not Recovered/Not Resolved]
  - Malaise [Not Recovered/Not Resolved]
  - Back pain [Unknown]
  - Diabetes mellitus inadequate control [Unknown]
  - Injection site nodule [Recovering/Resolving]

NARRATIVE: CASE EVENT DATE: 201907
